FAERS Safety Report 6107864-4 (Version None)
Quarter: 2009Q1

REPORT INFORMATION
  Report Type: 
  Country: None (occurrence: None)
  Receive Date: 20090303
  Receipt Date: 20080220
  Transmission Date: 20090719
  Serious: Yes (Other)
  Sender: FDA-Public Use
  Company Number: MESA-2008-004

PATIENT

DRUGS (1)
  1. CANASA [Suspect]
     Dosage: 1000MG/RECTAL; MORE THAN 2 YEARS
     Route: 054

REACTIONS (1)
  - PANCREATITIS [None]
